FAERS Safety Report 15367303 (Version 1)
Quarter: 2018Q3

REPORT INFORMATION
  Report Type: Spontaneous
  Country: US (occurrence: US)
  Receive Date: 20180903
  Receipt Date: 20180903
  Transmission Date: 20181010
  Serious: Yes (Life-Threatening, Hospitalization, Disabling)
  Sender: FDA-Public Use
  Company Number: None

PATIENT
  Age: 61 Year
  Sex: Male
  Weight: 99 kg

DRUGS (5)
  1. GLUCERNA [Concomitant]
     Active Substance: AMINO ACIDS\DEXTROSE\ELECTROLYTES NOS\SOYBEAN OIL\VITAMINS
  2. INSULIN [Concomitant]
     Active Substance: INSULIN NOS
  3. BACTRIM DS [Concomitant]
     Active Substance: SULFAMETHOXAZOLE\TRIMETHOPRIM
  4. SENEXON [Concomitant]
     Active Substance: SENNOSIDES A AND B
  5. JARDIANCE [Suspect]
     Active Substance: EMPAGLIFLOZIN
     Indication: DIABETES MELLITUS
     Dosage: ?          QUANTITY:30 TABLET(S);?
     Route: 048
     Dates: start: 20171130, end: 20180810

REACTIONS (7)
  - Diarrhoea [None]
  - Vomiting [None]
  - Asthenia [None]
  - Sepsis [None]
  - Pyrexia [None]
  - Necrotising fasciitis [None]
  - Gangrene [None]

NARRATIVE: CASE EVENT DATE: 20180824
